FAERS Safety Report 15686622 (Version 2)
Quarter: 2019Q2

REPORT INFORMATION
  Report Type: Spontaneous
  Country: JP (occurrence: JP)
  Receive Date: 20181204
  Receipt Date: 20190417
  Transmission Date: 20190711
  Serious: Yes (Other)
  Sender: FDA-Public Use
  Company Number: PHJP2018JP020196

PATIENT
  Age: 7 Year

DRUGS (2)
  1. TEGRETOL [Suspect]
     Active Substance: CARBAMAZEPINE
     Dosage: 250 MG, QD
     Route: 048
  2. TEGRETOL [Suspect]
     Active Substance: CARBAMAZEPINE
     Indication: PAIN
     Dosage: 35 MG, QD
     Route: 048

REACTIONS (6)
  - Lipase increased [Unknown]
  - Pancreatic enlargement [Unknown]
  - Pancreatitis [Unknown]
  - Pyrexia [Unknown]
  - Amylase increased [Unknown]
  - Off label use [Unknown]
